FAERS Safety Report 6368998-2 (Version None)
Quarter: 2009Q3

REPORT INFORMATION
  Report Type: 
  Country: None (occurrence: None)
  Receive Date: 20090916
  Receipt Date: 20090908
  Transmission Date: 20100115
  Serious: Yes (Death)
  Sender: FDA-Public Use
  Company Number: ADR19462009

PATIENT
  Age: 43 Year
  Sex: Male

DRUGS (2)
  1. SERTRALINE HCL [Suspect]
     Dosage: 50MG ORAL
     Route: 048
  2. CLOZARIL [Concomitant]

REACTIONS (2)
  - ALCOHOLISM [None]
  - ANTIPSYCHOTIC DRUG LEVEL INCREASED [None]
